FAERS Safety Report 25565001 (Version 2)
Quarter: 2025Q3

REPORT INFORMATION
  Report Type: Report from Study
  Country: EU (occurrence: EU)
  Receive Date: 20250716
  Receipt Date: 20250723
  Transmission Date: 20251021
  Serious: Yes (Other)
  Sender: MYLAN
  Company Number: EU-MYLANLABS-2025M1057987

PATIENT
  Age: 67 Year
  Sex: Male

DRUGS (5)
  1. REMIFENTANIL [Interacting]
     Active Substance: REMIFENTANIL
     Indication: Anaesthesia
  2. CISATRACURIUM [Interacting]
     Active Substance: CISATRACURIUM
     Indication: Anaesthesia
  3. CLOMIPRAMINE [Interacting]
     Active Substance: CLOMIPRAMINE
     Indication: Restless legs syndrome
  4. PROPOFOL [Interacting]
     Active Substance: PROPOFOL
     Indication: Anaesthesia
  5. SUCCINYLCHOLINE CHLORIDE [Interacting]
     Active Substance: SUCCINYLCHOLINE CHLORIDE
     Indication: Anaesthesia

REACTIONS (3)
  - Drug interaction [Unknown]
  - Procedural hypotension [Unknown]
  - Off label use [Unknown]
